FAERS Safety Report 8963397 (Version 1)
Quarter: 2012Q4

REPORT INFORMATION
  Report Type: 
  Country: US (occurrence: US)
  Receive Date: 20121214
  Receipt Date: 20121214
  Transmission Date: 20130627
  Serious: Yes (Hospitalization)
  Sender: FDA-Public Use
  Company Number: US-ROXANE LABORATORIES, INC.-2012-RO-02549RO

PATIENT
  Age: 70 None
  Sex: Female

DRUGS (10)
  1. LOSARTAN POTASSIUM W/HYDROCHLOROTHIAZIDE [Suspect]
     Dates: start: 2008
  2. PLACEBO [Suspect]
     Indication: CHRONIC OBSTRUCTIVE PULMONARY DISEASE
     Route: 055
     Dates: start: 20100710
  3. SPIRIVA [Concomitant]
     Dates: start: 20120615
  4. ATROVENT [Concomitant]
     Dates: start: 2001
  5. ASPIRIN [Concomitant]
     Dates: start: 201104
  6. TYLENOL [Concomitant]
     Dates: start: 2011
  7. LIPITOR [Concomitant]
     Dates: start: 201104
  8. CALCIUM WITH VITAMIN D [Concomitant]
     Dates: start: 2010
  9. BYSTOLIC [Concomitant]
     Dates: start: 20120813
  10. PLAVIX [Concomitant]
     Dates: start: 200804

REACTIONS (4)
  - Atrial fibrillation [Recovered/Resolved]
  - Stress cardiomyopathy [Unknown]
  - Hypokalaemia [Unknown]
  - Hyponatraemia [Unknown]
